FAERS Safety Report 5816997-9 (Version None)
Quarter: 2008Q3

REPORT INFORMATION
  Report Type: 
  Country: None (occurrence: None)
  Receive Date: 20080722
  Receipt Date: 20080715
  Transmission Date: 20090109
  Serious: Yes (Other)
  Sender: FDA-Public Use
  Company Number: US-JNJFOC-20080704421

PATIENT
  Age: 90 Year
  Sex: Male

DRUGS (2)
  1. VIADUR [Suspect]
     Indication: DRUG USE FOR UNKNOWN INDICATION
  2. ANTIHYPERTENSIVE MEDICATIONS [Concomitant]
     Indication: BLOOD PRESSURE

REACTIONS (8)
  - ARTHRALGIA [None]
  - BLOOD PRESSURE INCREASED [None]
  - FATIGUE [None]
  - HOT FLUSH [None]
  - MUSCLE ATROPHY [None]
  - NIGHT SWEATS [None]
  - PAIN [None]
  - PAIN IN EXTREMITY [None]
